FAERS Safety Report 6060126-6 (Version None)
Quarter: 2009Q1

REPORT INFORMATION
  Report Type: 
  Country: None (occurrence: None)
  Receive Date: 20090128
  Receipt Date: 20090113
  Transmission Date: 20090719
  Serious: Yes (Hospitalization)
  Sender: FDA-Public Use
  Company Number: 2009S1000690

PATIENT
  Age: 24 Year
  Sex: Female

DRUGS (5)
  1. IBUPROFEN TABLETS [Suspect]
     Indication: INFLUENZA
     Dosage: ; ORAL
     Route: 048
  2. ALPRAZOLAM [Concomitant]
  3. ESCITALOPRAM [Concomitant]
  4. ACETAMINOPHEN [Concomitant]
  5. AMOXICILLIN [Concomitant]

REACTIONS (5)
  - ACUTE INTERSTITIAL PNEUMONITIS [None]
  - BRONCHOPULMONARY ASPERGILLOSIS ALLERGIC [None]
  - INTERSTITIAL LUNG DISEASE [None]
  - PULMONARY VASCULITIS [None]
  - SELF-MEDICATION [None]
